FAERS Safety Report 9444683 (Version 1)
Quarter: 2013Q3

REPORT INFORMATION
  Report Type: Spontaneous
  Country: FR (occurrence: FR)
  Receive Date: 20130807
  Receipt Date: 20130807
  Transmission Date: 20140515
  Serious: Yes (Hospitalization, Other)
  Sender: FDA-Public Use
  Company Number: FR-EISAI INC-E3810-06562-SPO-FR

PATIENT
  Age: 72 Year
  Sex: Male

DRUGS (6)
  1. E3810 (RABEPRAZOLE) [Suspect]
     Indication: PRODUCT USED FOR UNKNOWN INDICATION
     Route: 048
     Dates: start: 20130321, end: 20130322
  2. DROLEPTAN [Suspect]
     Indication: ANAESTHESIA
     Route: 042
     Dates: start: 20130320, end: 20130320
  3. ELIQUIS [Concomitant]
     Indication: PRODUCT USED FOR UNKNOWN INDICATION
     Route: 042
     Dates: start: 20130321, end: 20130323
  4. CEFAMANDOLE FLAVELAB [Concomitant]
     Indication: PRODUCT USED FOR UNKNOWN INDICATION
     Route: 042
     Dates: start: 20130320, end: 20130321
  5. NAROPEINE [Concomitant]
     Indication: ANAESTHESIA
     Route: 042
     Dates: start: 20130320, end: 20130320
  6. OXYNORM [Concomitant]
     Indication: ANAESTHESIA
     Route: 042
     Dates: start: 20130320, end: 20130320

REACTIONS (6)
  - Pancytopenia [Recovered/Resolved]
  - Renal failure acute [Recovered/Resolved]
  - Atrial fibrillation [Unknown]
  - Transient ischaemic attack [Unknown]
  - Lymphadenopathy [Recovered/Resolved]
  - Rash [Recovered/Resolved]
